FAERS Safety Report 6558553-3 (Version None)
Quarter: 2010Q1

REPORT INFORMATION
  Report Type: 
  Country: None (occurrence: None)
  Receive Date: 20100126
  Receipt Date: 20100113
  Transmission Date: 20100710
  Serious: Yes (Other)
  Sender: FDA-Public Use
  Company Number: 2010AP000094

PATIENT
  Age: 42 Year
  Sex: Male

DRUGS (3)
  1. CYCLOSPORINE [Suspect]
     Indication: APLASTIC ANAEMIA
  2. MYCOPHENOLATE MOFETIL [Suspect]
     Indication: APLASTIC ANAEMIA
  3. ANTI-THYMOCYTE GLOBULIN NOS [Suspect]
     Indication: APLASTIC ANAEMIA

REACTIONS (3)
  - CHRONIC HEPATITIS [None]
  - HEPATITIS B [None]
  - PANCYTOPENIA [None]
